FAERS Safety Report 8020830-7 (Version None)
Quarter: 2012Q1

REPORT INFORMATION
  Report Type: 
  Country: None (occurrence: None)
  Receive Date: 20120104
  Receipt Date: 20111227
  Transmission Date: 20120608
  Serious: No
  Sender: FDA-Public Use
  Company Number: US-BIOGENIDEC-2011BI048650

PATIENT
  Sex: Male

DRUGS (1)
  1. AVONEX [Suspect]
     Indication: MULTIPLE SCLEROSIS
     Route: 030
     Dates: start: 20110619

REACTIONS (9)
  - VISION BLURRED [None]
  - HYPERSOMNIA [None]
  - GENERAL SYMPTOM [None]
  - VISUAL IMPAIRMENT [None]
  - CHILLS [None]
  - MUSCULAR WEAKNESS [None]
  - PYREXIA [None]
  - SOMNOLENCE [None]
  - FATIGUE [None]
